FAERS Safety Report 5822156-6 (Version None)
Quarter: 2008Q3

REPORT INFORMATION
  Report Type: 
  Country: None (occurrence: None)
  Receive Date: 20080721
  Receipt Date: 20080710
  Transmission Date: 20090109
  Serious: Yes (Life-Threatening)
  Sender: FDA-Public Use
  Company Number: 2008001443

PATIENT
  Age: 85 Year
  Sex: Male

DRUGS (1)
  1. TARCEVA [Suspect]
     Indication: LUNG NEOPLASM MALIGNANT
     Dosage: QD, ORAL
     Route: 048
     Dates: start: 20071101

REACTIONS (2)
  - DEMYELINATING POLYNEUROPATHY [None]
  - PERIPHERAL SENSORIMOTOR NEUROPATHY [None]
